FAERS Safety Report 26106945 (Version 1)
Quarter: 2025Q4

REPORT INFORMATION
  Report Type: Spontaneous
  Country: US (occurrence: US)
  Receive Date: 20251201
  Receipt Date: 20251201
  Transmission Date: 20260118
  Serious: Yes (Hospitalization)
  Sender: CSL BEHRING
  Company Number: US-CSL-13921

PATIENT
  Age: 40 Year
  Sex: Female

DRUGS (3)
  1. HUMATE-P [Suspect]
     Active Substance: HUMAN COAGULATION FACTOR VIII/VON WILLEBRAND FACTOR COMPLEX
     Indication: Von Willebrand^s disease
     Dosage: 5971 RCOF UNITS, EVERY 24 HOURS, QD
     Route: 042
     Dates: start: 202511
  2. HUMATE-P [Suspect]
     Active Substance: HUMAN COAGULATION FACTOR VIII/VON WILLEBRAND FACTOR COMPLEX
     Dosage: 5971 RCOF UNITS, EVERY 24 HOURS,QD
     Route: 042
     Dates: start: 202511
  3. SODIUM CHLORIDE [Concomitant]
     Active Substance: SODIUM CHLORIDE
     Dosage: 10 ML

REACTIONS (1)
  - Surgery [Unknown]

NARRATIVE: CASE EVENT DATE: 20251114
